FAERS Safety Report 9899001 (Version 1)
Quarter: 2014Q1

REPORT INFORMATION
  Report Type: Spontaneous
  Country: RU (occurrence: RU)
  Receive Date: 20140214
  Receipt Date: 20140214
  Transmission Date: 20141002
  Serious: Yes (Hospitalization)
  Sender: FDA-Public Use
  Company Number: RU-VIIV HEALTHCARE LIMITED-B0968946A

PATIENT
  Sex: Male

DRUGS (3)
  1. COMBIVIR [Suspect]
     Indication: HIV INFECTION
     Route: 065
     Dates: start: 201306, end: 201309
  2. KIVEXA [Suspect]
     Indication: HIV INFECTION
     Route: 065
     Dates: start: 201309
  3. INTELENCE [Suspect]
     Indication: HIV INFECTION
     Route: 065
     Dates: start: 201306

REACTIONS (6)
  - Haemoglobin decreased [Unknown]
  - Blood pressure increased [Recovered/Resolved]
  - Hypertension [Not Recovered/Not Resolved]
  - Cold sweat [Unknown]
  - Chest pain [Unknown]
  - Dyspnoea [Unknown]
